FAERS Safety Report 6172427-1 (Version None)
Quarter: 2009Q2

REPORT INFORMATION
  Report Type: 
  Country: None (occurrence: None)
  Receive Date: 20090424
  Receipt Date: 20090123
  Transmission Date: 20091009
  Serious: No
  Sender: FDA-Public Use
  Company Number: ALL1-2009-00185

PATIENT
  Age: 22 Year
  Sex: Female
  Weight: 54.4 kg

DRUGS (6)
  1. VYVANSE [Suspect]
     Indication: ATTENTION DEFICIT/HYPERACTIVITY DISORDER
     Dosage: 30 MG, 1X/DAY:QD, ORAL
     Route: 048
     Dates: start: 20090121
  2. LEXAPRO [Concomitant]
  3. XANAX [Concomitant]
  4. FLEXERIL (CEFIXIME) [Concomitant]
  5. NUVARING [Concomitant]
  6. PROTEIN SUPPLEMENTS [Concomitant]

REACTIONS (6)
  - BRUXISM [None]
  - CHEST PAIN [None]
  - ENERGY INCREASED [None]
  - FATIGUE [None]
  - HEART RATE INCREASED [None]
  - INSOMNIA [None]
